FAERS Safety Report 19349347 (Version 1)
Quarter: 2021Q2

REPORT INFORMATION
  Report Type: Spontaneous
  Country: US (occurrence: US)
  Receive Date: 20210530
  Receipt Date: 20210530
  Transmission Date: 20210717
  Serious: Yes (Life-Threatening)
  Sender: FDA-Public Use
  Company Number: None

PATIENT
  Age: 22 Year
  Sex: Male
  Weight: 110.7 kg

DRUGS (3)
  1. INVEGA SUSTENNA [Suspect]
     Active Substance: PALIPERIDONE PALMITATE
     Indication: BIPOLAR DISORDER
     Dosage: ?          OTHER FREQUENCY:1 SHOT A MONTH;?
     Route: 030
     Dates: start: 20180101, end: 20190101
  2. ABILIFY [Concomitant]
     Active Substance: ARIPIPRAZOLE
  3. INVEGA SUSTENNA [Concomitant]
     Active Substance: PALIPERIDONE PALMITATE

REACTIONS (3)
  - Weight increased [None]
  - Road traffic accident [None]
  - Pain in extremity [None]

NARRATIVE: CASE EVENT DATE: 20181023
